FAERS Safety Report 10995787 (Version 2)
Quarter: 2015Q2

REPORT INFORMATION
  Report Type: Spontaneous
  Country: US (occurrence: US)
  Receive Date: 20150407
  Receipt Date: 20150416
  Transmission Date: 20150821
  Serious: Yes (Hospitalization)
  Sender: FDA-Public Use
  Company Number: US-ACTELION-A-NJ2015-115148

PATIENT
  Age: 59 Year
  Sex: Male

DRUGS (3)
  1. VELETRI [Suspect]
     Active Substance: EPOPROSTENOL
     Indication: PORTOPULMONARY HYPERTENSION
     Dosage: 22.5 NG/KG, PER MIN
     Route: 048
     Dates: start: 20121211
  2. COUMADIN [Concomitant]
     Active Substance: WARFARIN SODIUM
  3. VIAGRA [Concomitant]
     Active Substance: SILDENAFIL CITRATE

REACTIONS (4)
  - Device related infection [Recovered/Resolved]
  - Medical device change [Recovered/Resolved]
  - Oral candidiasis [Unknown]
  - Catheter placement [Recovered/Resolved]
